FAERS Safety Report 13414203 (Version 3)
Quarter: 2017Q2

REPORT INFORMATION
  Report Type: Spontaneous
  Country: CA (occurrence: CA)
  Receive Date: 20170407
  Receipt Date: 20170619
  Transmission Date: 20170830
  Serious: Yes (Other)
  Sender: FDA-Public Use
  Company Number: CA-PFIZER INC-2017153526

PATIENT
  Age: 44 Year
  Sex: Female
  Weight: 100 kg

DRUGS (2)
  1. ATIVAN [Suspect]
     Active Substance: LORAZEPAM
     Dosage: 1 MG, AS NEEDED
     Dates: start: 201602
  2. COVERSYL PLUS /01421201/ [Concomitant]
     Active Substance: INDAPAMIDE\PERINDOPRIL ERBUMINE
     Dosage: 8 MG / 2.5 MG, DAILY
     Dates: start: 2015

REACTIONS (1)
  - Ovarian cyst [Not Recovered/Not Resolved]

NARRATIVE: CASE EVENT DATE: 201608
